FAERS Safety Report 7097578-9 (Version None)
Quarter: 2010Q4

REPORT INFORMATION
  Report Type: 
  Country: None (occurrence: None)
  Receive Date: 20101111
  Receipt Date: 20101101
  Transmission Date: 20110411
  Serious: Yes (Other)
  Sender: FDA-Public Use
  Company Number: FI-AMGEN-FINSP2010002346

PATIENT

DRUGS (4)
  1. ENBREL [Suspect]
     Indication: PSORIATIC ARTHROPATHY
     Route: 058
     Dates: start: 20060531, end: 20090801
  2. PLAVIX [Concomitant]
     Route: 048
     Dates: start: 20070301
  3. SIMVASTATIN [Concomitant]
     Route: 048
  4. METFORMIN [Concomitant]
     Indication: DIABETES MELLITUS
     Dosage: 1 GRAM + 2 GRAMS DAILY
     Route: 048

REACTIONS (1)
  - SARCOIDOSIS [None]
